FAERS Safety Report 16342209 (Version 1)
Quarter: 2019Q2

REPORT INFORMATION
  Report Type: Spontaneous
  Country: ES (occurrence: ES)
  Receive Date: 20190522
  Receipt Date: 20190522
  Transmission Date: 20190711
  Serious: Yes (Hospitalization)
  Sender: FDA-Public Use
  Company Number: ES-TEVA-2019-ES-1052186

PATIENT
  Age: 5 Day
  Sex: Male
  Weight: .8 kg

DRUGS (2)
  1. IBUPROFENO (1769A) [Concomitant]
     Active Substance: IBUPROFEN
     Indication: PATENT DUCTUS ARTERIOSUS
     Dosage: 3 DOSES
     Route: 042
     Dates: start: 20180412, end: 20180414
  2. IBUPROFENO (1769A) [Suspect]
     Active Substance: IBUPROFEN
     Indication: PATENT DUCTUS ARTERIOSUS
     Dosage: THREE DOSES
     Route: 042
     Dates: start: 20180416, end: 20180418

REACTIONS (2)
  - Enterocolitis [Recovered/Resolved with Sequelae]
  - Thrombocytopenia [Recovered/Resolved]

NARRATIVE: CASE EVENT DATE: 20180425
